FAERS Safety Report 20406046 (Version 1)
Quarter: 2022Q1

REPORT INFORMATION
  Report Type: Spontaneous
  Country: FR (occurrence: FR)
  Receive Date: 20220131
  Receipt Date: 20220131
  Transmission Date: 20220423
  Serious: Yes (Congenital Anomaly)
  Sender: FDA-Public Use
  Company Number: None

PATIENT

DRUGS (6)
  1. SINGULAIR [Suspect]
     Active Substance: MONTELUKAST SODIUM
     Indication: Foetal exposure during pregnancy
     Dosage: 10 MILLIGRAM, QD
     Route: 064
     Dates: start: 20210609
  2. CETIRIZINE HYDROCHLORIDE [Suspect]
     Active Substance: CETIRIZINE HYDROCHLORIDE
     Indication: Foetal exposure during pregnancy
     Dosage: 10 MILLIGRAM, QD
     Route: 064
     Dates: start: 20210806
  3. SYMBICORT [Suspect]
     Active Substance: BUDESONIDE\FORMOTEROL FUMARATE DIHYDRATE
     Indication: Foetal exposure during pregnancy
     Dosage: 400 MICROGRAM/12 MICROGRAM/DAY
     Route: 064
     Dates: start: 20210609, end: 20210801
  4. BILASTINE [Suspect]
     Active Substance: BILASTINE
     Indication: Foetal exposure during pregnancy
     Dosage: 10 MILLIGRAM, QD
     Route: 064
     Dates: start: 20210609
  5. BECLOMETHASONE [Suspect]
     Active Substance: BECLOMETHASONE
     Indication: Foetal exposure during pregnancy
     Dosage: 200 MICROGRAM/ DAY
     Route: 064
     Dates: start: 20210609
  6. PREDNISOLONE SODIUM METAZOATE [Suspect]
     Active Substance: PREDNISOLONE SODIUM METAZOATE
     Indication: Foetal exposure during pregnancy
     Dosage: 60 MILLIGRAM, QD
     Route: 064
     Dates: start: 20210804, end: 20210807

REACTIONS (4)
  - Cystic lymphangioma [Not Recovered/Not Resolved]
  - Spine malformation [Not Recovered/Not Resolved]
  - Microphthalmos [Not Recovered/Not Resolved]
  - Foetal malformation [Not Recovered/Not Resolved]

NARRATIVE: CASE EVENT DATE: 20210927
